FAERS Safety Report 25681570 (Version 1)
Quarter: 2025Q3

REPORT INFORMATION
  Report Type: Spontaneous
  Country: US (occurrence: US)
  Receive Date: 20250814
  Receipt Date: 20250814
  Transmission Date: 20251020
  Serious: Yes (Other)
  Sender: RANBAXY
  Company Number: US-SUN PHARMACEUTICAL INDUSTRIES INC-2025R1-521882

PATIENT
  Sex: Female

DRUGS (1)
  1. CARBIDOPA AND LEVODOPA [Suspect]
     Active Substance: CARBIDOPA\LEVODOPA
     Indication: Product used for unknown indication
     Dosage: UNK UNK, TID ( ONE AND HALF PILLS)
     Route: 065

REACTIONS (6)
  - Immobile [Unknown]
  - Drug ineffective [Unknown]
  - Product physical issue [Unknown]
  - Therapeutic product effect decreased [Unknown]
  - Tremor [Unknown]
  - Hypersomnia [Unknown]
